FAERS Safety Report 9099369 (Version 1)
Quarter: 2013Q1

REPORT INFORMATION
  Report Type: Spontaneous
  Country: TW (occurrence: TW)
  Receive Date: 20130214
  Receipt Date: 20130214
  Transmission Date: 20140127
  Serious: Yes (Other)
  Sender: FDA-Public Use
  Company Number: PHHY2013TW013758

PATIENT
  Age: 59 Year
  Sex: Male

DRUGS (2)
  1. DESFERAL [Suspect]
     Indication: IRON OVERLOAD
     Dosage: 40 MG/KG, (TITRATED GRADUALLY FROM 10-40 MG/KG/WEEK)
     Route: 042
     Dates: start: 200805
  2. RED BLOOD CELLS [Concomitant]
     Indication: REFRACTORY CYTOPENIA WITH UNILINEAGE DYSPLASIA
     Dosage: 500 ML, BIWEEKLY

REACTIONS (4)
  - Chronic hepatitis [Unknown]
  - Dyspnoea exertional [Unknown]
  - Serum ferritin increased [Recovering/Resolving]
  - Drug ineffective [Unknown]
